FAERS Safety Report 20737316 (Version 1)
Quarter: 2022Q2

REPORT INFORMATION
  Report Type: Spontaneous
  Country: FR (occurrence: None)
  Receive Date: 20220421
  Receipt Date: 20220421
  Transmission Date: 20220720
  Serious: Yes (Other)
  Sender: FDA-Public Use
  Company Number: 2022A148924

PATIENT
  Age: 67 Year
  Sex: Female
  Weight: 69 kg

DRUGS (10)
  1. DAPAGLIFLOZIN [Suspect]
     Active Substance: DAPAGLIFLOZIN
     Indication: Type 2 diabetes mellitus
     Route: 048
     Dates: start: 20220111, end: 20220211
  2. VENLAFAXINE [Concomitant]
     Active Substance: VENLAFAXINE HYDROCHLORIDE
  3. PERINDOPRIL [Concomitant]
     Active Substance: PERINDOPRIL
  4. RABEPRAZOLE SODIUM [Concomitant]
     Active Substance: RABEPRAZOLE SODIUM
  5. CLONIDINE [Concomitant]
     Active Substance: CLONIDINE
  6. DAFALGAN [Concomitant]
     Active Substance: ACETAMINOPHEN
  7. BISOPROLOL FUMARATE\HYDROCHLOROTHIAZIDE [Concomitant]
     Active Substance: BISOPROLOL FUMARATE\HYDROCHLOROTHIAZIDE
  8. KARDEGIC [Concomitant]
     Active Substance: ASPIRIN DL-LYSINE
  9. METFORMIN HYDROCHLORIDE [Concomitant]
     Active Substance: METFORMIN HYDROCHLORIDE
  10. BISOPROLOL FUMARATE\HYDROCHLOROTHIAZIDE [Concomitant]
     Active Substance: BISOPROLOL FUMARATE\HYDROCHLOROTHIAZIDE

REACTIONS (1)
  - Genital ulceration [Recovered/Resolved]

NARRATIVE: CASE EVENT DATE: 20220125
